FAERS Safety Report 14844070 (Version 1)
Quarter: 2018Q2

REPORT INFORMATION
  Report Type: Spontaneous
  Country: GB (occurrence: GB)
  Receive Date: 20180503
  Receipt Date: 20180503
  Transmission Date: 20180711
  Serious: Yes (Life-Threatening)
  Sender: FDA-Public Use
  Company Number: GB-MYLANLABS-2018M1028551

PATIENT
  Age: 40 Year
  Sex: Male
  Weight: 93 kg

DRUGS (1)
  1. IBUPROFEN. [Suspect]
     Active Substance: IBUPROFEN
     Indication: PRODUCT USED FOR UNKNOWN INDICATION
     Dosage: UNK

REACTIONS (2)
  - Circulatory collapse [Unknown]
  - Cardiac arrest [Recovered/Resolved]

NARRATIVE: CASE EVENT DATE: 2004
